FAERS Safety Report 20029952 (Version 1)
Quarter: 2021Q4

REPORT INFORMATION
  Report Type: Spontaneous
  Country: US (occurrence: US)
  Receive Date: 20211103
  Receipt Date: 20211103
  Transmission Date: 20220303
  Serious: Yes (Other)
  Sender: FDA-Public Use
  Company Number: US-PFIZER INC-202101425591

PATIENT
  Age: 48 Year
  Sex: Male

DRUGS (1)
  1. XELJANZ XR [Suspect]
     Active Substance: TOFACITINIB CITRATE
     Dosage: 22 MG, DAILY

REACTIONS (5)
  - Rectal haemorrhage [Unknown]
  - Condition aggravated [Unknown]
  - Abdominal pain [Unknown]
  - Pain [Unknown]
  - Product prescribing issue [Unknown]
